FAERS Safety Report 25999893 (Version 1)
Quarter: 2025Q4

REPORT INFORMATION
  Report Type: Spontaneous
  Country: US (occurrence: None)
  Receive Date: 20251104
  Receipt Date: 20251104
  Transmission Date: 20260117
  Serious: Yes (Death)
  Sender: FDA-CTU
  Company Number: None

PATIENT
  Age: 76 Year
  Sex: Male
  Weight: 44.6 kg

DRUGS (13)
  1. LOKELMA [Suspect]
     Active Substance: SODIUM ZIRCONIUM CYCLOSILICATE
     Indication: Hyperkalaemia
     Dosage: OTHER FREQUENCY : TID FOR 2 DAYS ONLY;?
     Route: 048
     Dates: start: 20251022, end: 20251023
  2. PIOGLITAZONE [Concomitant]
     Active Substance: PIOGLITAZONE
  3. LANTUS SOLOSTAR [Concomitant]
     Active Substance: INSULIN GLARGINE
  4. METFORMIN [Concomitant]
     Active Substance: METFORMIN HYDROCHLORIDE
  5. LOKELMA [Concomitant]
     Active Substance: SODIUM ZIRCONIUM CYCLOSILICATE
  6. JARDIANCE [Concomitant]
     Active Substance: EMPAGLIFLOZIN
  7. GABAPENTIN [Concomitant]
     Active Substance: GABAPENTIN
  8. CLOPIDOGREL [Concomitant]
     Active Substance: CLOPIDOGREL BISULFATE
  9. CARVEDILOL [Concomitant]
     Active Substance: CARVEDILOL
  10. ROSUVASTATIN [Concomitant]
     Active Substance: ROSUVASTATIN
  11. ASPIRIN [Concomitant]
     Active Substance: ASPIRIN
  12. ACETAMINOPHEN [Concomitant]
     Active Substance: ACETAMINOPHEN
  13. POLY ETH GLYCOL POWDER [Concomitant]

REACTIONS (1)
  - Cerebral haemorrhage [None]

NARRATIVE: CASE EVENT DATE: 20251031
